FAERS Safety Report 12850320 (Version 1)
Quarter: 2016Q4

REPORT INFORMATION
  Report Type: Report from Study
  Country: DE (occurrence: DE)
  Receive Date: 20161014
  Receipt Date: 20161014
  Transmission Date: 20170207
  Serious: Yes (Hospitalization, Other)
  Sender: FDA-Public Use
  Company Number: DE-TEVA-656097GER

PATIENT
  Sex: Female
  Weight: 70 kg

DRUGS (3)
  1. L-THYROXIN 75 MG [Concomitant]
     Indication: HYPOTHYROIDISM
     Dosage: 75 MILLIGRAM DAILY;
     Route: 048
     Dates: start: 20120918
  2. COPAXONE [Suspect]
     Active Substance: GLATIRAMER ACETATE
     Indication: MULTIPLE SCLEROSIS
     Route: 058
     Dates: start: 20150405
  3. RISEDRONSAEURE 35 MG [Concomitant]
     Indication: OSTEOPOROSIS
     Route: 048
     Dates: start: 2014

REACTIONS (2)
  - Abdominal pain lower [Not Recovered/Not Resolved]
  - Diverticulitis [Not Recovered/Not Resolved]

NARRATIVE: CASE EVENT DATE: 2016
